FAERS Safety Report 6666619-2 (Version None)
Quarter: 2010Q2

REPORT INFORMATION
  Report Type: 
  Country: None (occurrence: None)
  Receive Date: 20100405
  Receipt Date: 20100326
  Transmission Date: 20101027
  Serious: Yes (Death)
  Sender: FDA-Public Use
  Company Number: FR-BIOGENIDEC-2010BI006448

PATIENT
  Age: 41 Year
  Sex: Female

DRUGS (7)
  1. TYSABRI [Suspect]
     Indication: MULTIPLE SCLEROSIS
     Route: 042
     Dates: start: 20080901, end: 20100127
  2. SEROPRAM [Concomitant]
     Indication: DEPRESSION
  3. BACLOFEN [Concomitant]
     Indication: MUSCLE SPASTICITY
  4. NEURONTIN [Concomitant]
     Indication: NEURALGIA
     Dates: start: 20090101
  5. ACETAMINOPHEN W/ PROPOXYPHENE HCL [Concomitant]
  6. IXPRIM [Concomitant]
  7. DOLIPRANE [Concomitant]

REACTIONS (1)
  - COMPLETED SUICIDE [None]
